FAERS Safety Report 14079525 (Version 1)
Quarter: 2017Q4

REPORT INFORMATION
  Report Type: Spontaneous
  Country: US (occurrence: US)
  Receive Date: 20171012
  Receipt Date: 20171012
  Transmission Date: 20180321
  Serious: Yes (Other)
  Sender: FDA-Public Use
  Company Number: US-BRISTOL-MYERS SQUIBB COMPANY-BMS-2017-088851

PATIENT
  Age: 52 Year
  Sex: Female
  Weight: 62.59 kg

DRUGS (2)
  1. KENALOG-40 [Suspect]
     Active Substance: TRIAMCINOLONE ACETONIDE
     Indication: PRODUCT USED FOR UNKNOWN INDICATION
     Dosage: 80 MG, UNK
     Route: 008
     Dates: start: 20170131, end: 20170131
  2. ZOFRAN [Concomitant]
     Active Substance: ONDANSETRON HYDROCHLORIDE
     Indication: PRODUCT USED FOR UNKNOWN INDICATION
     Dosage: UNK
     Route: 065

REACTIONS (35)
  - Pain in extremity [Recovered/Resolved]
  - Nausea [Unknown]
  - Depression [Unknown]
  - Asthenia [Unknown]
  - Urticaria [Unknown]
  - Performance status decreased [Unknown]
  - Diplopia [Unknown]
  - Adrenocortical insufficiency acute [Unknown]
  - Neurological symptom [Unknown]
  - Dehydration [Unknown]
  - Acne [Unknown]
  - Scar [Unknown]
  - Hypoaesthesia [Recovered/Resolved]
  - Paraesthesia [Recovered/Resolved]
  - Hyperhidrosis [Unknown]
  - Constipation [Unknown]
  - Haemorrhage [Unknown]
  - Peripheral swelling [Recovered/Resolved]
  - Feeling cold [Unknown]
  - Product use issue [Unknown]
  - Pruritus [Unknown]
  - Abdominal distension [Unknown]
  - Malaise [Unknown]
  - Feeding disorder [Unknown]
  - Vision blurred [Unknown]
  - Pain [Unknown]
  - Eyelid ptosis [Unknown]
  - Adrenal neoplasm [Unknown]
  - Anxiety [Unknown]
  - Thirst [Unknown]
  - Dysgeusia [Unknown]
  - Swelling face [Unknown]
  - Flank pain [Unknown]
  - Amnesia [Unknown]
  - Smear cervix abnormal [Unknown]

NARRATIVE: CASE EVENT DATE: 201703
